FAERS Safety Report 25150103 (Version 2)
Quarter: 2025Q2

REPORT INFORMATION
  Report Type: Spontaneous
  Country: ZA (occurrence: ZA)
  Receive Date: 20250402
  Receipt Date: 20250422
  Transmission Date: 20250717
  Serious: Yes (Death, Other)
  Sender: ORGANON
  Company Number: ZA-ORGANON-O2503ZAF003031

PATIENT
  Age: 23 Year
  Sex: Female

DRUGS (1)
  1. MONTELUKAST SODIUM [Suspect]
     Active Substance: MONTELUKAST SODIUM

REACTIONS (1)
  - Completed suicide [Fatal]
